FAERS Safety Report 5614022-6 (Version None)
Quarter: 2008Q1

REPORT INFORMATION
  Report Type: 
  Country: None (occurrence: None)
  Receive Date: 20080205
  Receipt Date: 20080130
  Transmission Date: 20080703
  Serious: Yes (Hospitalization)
  Sender: FDA-Public Use
  Company Number: US-AVENTIS-200811076GDDC

PATIENT
  Age: 50 Year
  Sex: Female

DRUGS (4)
  1. DOCETAXEL [Suspect]
     Indication: OESOPHAGEAL CARCINOMA
     Dosage: DOSE: UNK
     Route: 042
     Dates: start: 20071009, end: 20080102
  2. CISPLATIN [Suspect]
     Indication: OESOPHAGEAL CARCINOMA
     Dosage: DOSE: UNK
     Dates: start: 20071009, end: 20080102
  3. IRINOTECAN [Suspect]
     Indication: OESOPHAGEAL CARCINOMA
     Dosage: DOSE: UNK
     Dates: start: 20071009, end: 20080102
  4. RADIATION THERAPY [Suspect]
     Indication: OESOPHAGEAL CARCINOMA

REACTIONS (5)
  - ANAEMIA [None]
  - FEBRILE NEUTROPENIA [None]
  - HYPOMAGNESAEMIA [None]
  - OESOPHAGITIS [None]
  - PYREXIA [None]
